FAERS Safety Report 12538568 (Version 1)
Quarter: 2016Q3

REPORT INFORMATION
  Report Type: Spontaneous
  Country: US (occurrence: US)
  Receive Date: 20160708
  Receipt Date: 20160708
  Transmission Date: 20161109
  Serious: No
  Sender: FDA-Public Use
  Company Number: US-ASTRAZENECA-2016SE73169

PATIENT
  Sex: Female

DRUGS (1)
  1. NEXIUM 24HR [Suspect]
     Active Substance: ESOMEPRAZOLE MAGNESIUM
     Dosage: UNKNOWN, TWO TIMES A DAY
     Route: 048

REACTIONS (4)
  - Overdose [Unknown]
  - Drug hypersensitivity [Unknown]
  - Product use issue [Unknown]
  - Dysphonia [Unknown]
